FAERS Safety Report 9063727 (Version 1)
Quarter: 2013Q1

REPORT INFORMATION
  Report Type: Report from Study
  Country: US (occurrence: US)
  Receive Date: 20130131
  Receipt Date: 20130131
  Transmission Date: 20140127
  Serious: No
  Sender: FDA-Public Use
  Company Number: US-ABBOTT-12P-163-0997632-00

PATIENT
  Age: 56 Year
  Sex: Male

DRUGS (8)
  1. HUMIRA [Suspect]
     Indication: PSORIASIS
     Route: 058
     Dates: start: 20121008, end: 20121008
  2. HUMIRA [Suspect]
     Route: 058
     Dates: start: 20121015, end: 20121015
  3. HUMIRA [Suspect]
     Route: 058
  4. AVALIDE [Concomitant]
     Indication: HYPERTENSION
     Dosage: DAILY
  5. SIMVASTATIN [Concomitant]
     Indication: BLOOD CHOLESTEROL INCREASED
     Dosage: DAILY
  6. ASPIRIN [Concomitant]
     Indication: PROPHYLAXIS
     Dosage: LOW DOSE DAILY
  7. HYDROCORTISONE [Concomitant]
     Indication: PSORIASIS
     Route: 061
  8. IBUPROFEN [Concomitant]
     Indication: BACK PAIN

REACTIONS (2)
  - Stress [Unknown]
  - Drug ineffective [Not Recovered/Not Resolved]
